FAERS Safety Report 7542449 (Version 3)
Quarter: 2020Q3

REPORT INFORMATION
  Report Type: Report from Study
  Country: RS (occurrence: None)
  Receive Date: 20100816
  Receipt Date: 20100831
  Transmission Date: 20201104
  Serious: Yes (Hospitalization)
  Sender: FDA-Public Use
  Company Number: RS-WYE-H16743210

PATIENT
  Age: 57 Year
  Sex: Female
  Weight: 68 kg

DRUGS (4)
  1. NERATINIB [Suspect]
     Active Substance: NERATINIB
     Route: 048
     Dates: start: 20100817
  2. PACLITAXEL. [Suspect]
     Active Substance: PACLITAXEL
     Dosage: 80 MG/M^2 ?  FREQUENCY NOT PROVIDED
     Route: 042
     Dates: start: 20100810
  3. PACLITAXEL. [Suspect]
     Active Substance: PACLITAXEL
     Indication: BREAST CANCER
     Dosage: 144 MG DAYS 1, 8, AND 15 OF A 28?DAY CYCLE
     Route: 042
     Dates: start: 20100713, end: 20100810
  4. NERATINIB [Suspect]
     Active Substance: NERATINIB
     Indication: BREAST CANCER
     Route: 048
     Dates: start: 20100713, end: 20100804

REACTIONS (4)
  - Fatigue [Recovered/Resolved]
  - Alanine aminotransferase increased [Recovered/Resolved]
  - Diarrhoea [Recovered/Resolved]
  - Aspartate aminotransferase increased [Recovered/Resolved]

NARRATIVE: CASE EVENT DATE: 20100805
